FAERS Safety Report 8480715-9 (Version None)
Quarter: 2012Q2

REPORT INFORMATION
  Report Type: 
  Country: None (occurrence: None)
  Receive Date: 20120625
  Receipt Date: 20120612
  Transmission Date: 20120825
  Serious: Yes (Other)
  Sender: FDA-Public Use
  Company Number: ACO_30711_2012

PATIENT
  Age: 21 Year
  Sex: Male
  Weight: 56.7 kg

DRUGS (3)
  1. AMPYRA [Suspect]
     Indication: GAIT DISTURBANCE
     Dosage: 10 MG, BID, ORAL
     Route: 048
     Dates: start: 20110701, end: 20120612
  2. TYSABRI [Concomitant]
  3. BACLOFEN [Concomitant]

REACTIONS (1)
  - CONVULSION [None]
